FAERS Safety Report 15587456 (Version 1)
Quarter: 2018Q4

REPORT INFORMATION
  Report Type: Spontaneous
  Country: FR (occurrence: FR)
  Receive Date: 20181105
  Receipt Date: 20181105
  Transmission Date: 20190205
  Serious: Yes (Other)
  Sender: FDA-Public Use
  Company Number: FR-UCBSA-2018048602

PATIENT
  Age: 40 Year
  Sex: Female
  Weight: 58 kg

DRUGS (5)
  1. LEVETIRACETAM. [Suspect]
     Active Substance: LEVETIRACETAM
     Indication: HYPOTHYROIDISM
     Dosage: 2500 MG PER DAY
     Route: 048
     Dates: start: 20180723, end: 20180725
  2. DI-HYDAN [Suspect]
     Active Substance: PHENYTOIN
     Indication: SEIZURE
     Dosage: 100 MG PER DAY
     Route: 048
     Dates: start: 20180725, end: 20180727
  3. PRODILANTIN [Suspect]
     Active Substance: FOSPHENYTOIN SODIUM
     Indication: SEIZURE
     Dosage: 1800 MG
     Route: 042
     Dates: end: 2018
  4. PARACETAMOL [Suspect]
     Active Substance: ACETAMINOPHEN
     Indication: PAIN
     Dosage: 2 G, UNK
     Route: 042
     Dates: end: 2018
  5. LEVETIRACETAM. [Suspect]
     Active Substance: LEVETIRACETAM
     Indication: OFF LABEL USE

REACTIONS (3)
  - Mixed liver injury [Recovering/Resolving]
  - Off label use [Unknown]
  - Hepatocellular injury [Not Recovered/Not Resolved]

NARRATIVE: CASE EVENT DATE: 201807
